FAERS Safety Report 5852058-0 (Version None)
Quarter: 2008Q3

REPORT INFORMATION
  Report Type: 
  Country: None (occurrence: None)
  Receive Date: 20080820
  Receipt Date: 20080820
  Transmission Date: 20090109
  Serious: Yes (Death)
  Sender: FDA-Public Use
  Company Number: None

PATIENT
  Age: 45 Year
  Sex: Male
  Weight: 112.0385 kg

DRUGS (3)
  1. REMERON [Suspect]
     Indication: DEPRESSION
     Dosage: 15 MG AT BEDTIME PO
     Route: 048
     Dates: start: 20080314, end: 20080708
  2. LISINOPRIL [Concomitant]
  3. METAFORIN [Concomitant]

REACTIONS (5)
  - COMPLETED SUICIDE [None]
  - DEPRESSION [None]
  - GUN SHOT WOUND [None]
  - MEDICATION ERROR [None]
  - PERSONALITY CHANGE [None]
